FAERS Safety Report 14726752 (Version 5)
Quarter: 2019Q2

REPORT INFORMATION
  Report Type: Spontaneous
  Country: GR (occurrence: GR)
  Receive Date: 20180406
  Receipt Date: 20190406
  Transmission Date: 20190711
  Serious: Yes (Life-Threatening, Hospitalization, Other)
  Sender: FDA-Public Use
  Company Number: GR-ACCORD-065395

PATIENT
  Age: 48 Year
  Sex: Female

DRUGS (10)
  1. LEVOSIMENDAN [Concomitant]
     Active Substance: LEVOSIMENDAN
     Indication: CARDIOMYOPATHY
     Dosage: 0.1 MCG/KG/MIN FOR 24 H
     Route: 065
  2. EPLERENONE. [Concomitant]
     Active Substance: EPLERENONE
  3. RAMIPRIL. [Suspect]
     Active Substance: RAMIPRIL
     Indication: CARDIAC FAILURE CHRONIC
     Route: 065
  4. IFOSFAMIDE. [Concomitant]
     Active Substance: IFOSFAMIDE
     Indication: CHONDROSARCOMA
     Route: 065
  5. DIGOXIN. [Concomitant]
     Active Substance: DIGOXIN
  6. CARVEDILOL/CARVEDILOL HYDROCHLODRIDE [Suspect]
     Active Substance: CARVEDILOL HYDROCHLORIDE
     Indication: CARDIAC FAILURE CHRONIC
     Route: 065
  7. DOPAMINE [Concomitant]
     Active Substance: DOPAMINE\DOPAMINE HYDROCHLORIDE
     Dosage: 5 MCG/KG/MIN
     Route: 065
  8. FUROSEMIDE. [Suspect]
     Active Substance: FUROSEMIDE
     Indication: CARDIAC FAILURE CHRONIC
     Route: 065
  9. CISPLATIN. [Concomitant]
     Active Substance: CISPLATIN
     Indication: CHONDROSARCOMA
     Route: 065
  10. DOXORUBICIN [Suspect]
     Active Substance: DOXORUBICIN
     Indication: CHONDROSARCOMA

REACTIONS (10)
  - Activated partial thromboplastin time prolonged [None]
  - Cardiogenic shock [Recovering/Resolving]
  - Pleural effusion [None]
  - Acute kidney injury [Recovered/Resolved]
  - Cardiomyopathy [Recovered/Resolved]
  - Cardiac failure [Recovered/Resolved]
  - Mental impairment [Unknown]
  - International normalised ratio increased [None]
  - Acute hepatic failure [Recovered/Resolved]
  - Hypotension [Unknown]
